FAERS Safety Report 22398831 (Version 1)
Quarter: 2023Q2

REPORT INFORMATION
  Report Type: Spontaneous
  Country: SK (occurrence: SK)
  Receive Date: 20230602
  Receipt Date: 20230602
  Transmission Date: 20230721
  Serious: Yes (Other)
  Sender: FDA-Public Use
  Company Number: SK-AMERICAN REGENT INC-2023001294

PATIENT
  Sex: Female

DRUGS (2)
  1. FERINJECT [Suspect]
     Active Substance: FERRIC CARBOXYMALTOSE
     Indication: Product used for unknown indication
     Dosage: 1000 MILLIGRAM
     Route: 064
     Dates: start: 20220721, end: 20220721
  2. CYANOCOBALAMIN [Concomitant]
     Active Substance: CYANOCOBALAMIN
     Indication: Product used for unknown indication
     Dosage: UNK; ONE
     Route: 064
     Dates: start: 20220721

REACTIONS (7)
  - Foetal vascular malperfusion [Unknown]
  - Cyanosis neonatal [Unknown]
  - Hypotonia neonatal [Unknown]
  - Neonatal tachypnoea [Unknown]
  - Premature baby [Unknown]
  - Foetal exposure during pregnancy [Unknown]
  - Neonatal dyspnoea [Unknown]

NARRATIVE: CASE EVENT DATE: 20220721
